FAERS Safety Report 4996526-2 (Version None)
Quarter: 2006Q2

REPORT INFORMATION
  Report Type: 
  Country: None (occurrence: None)
  Receive Date: 20060509
  Receipt Date: 20060426
  Transmission Date: 20061013
  Serious: Yes (Life-Threatening, Hospitalization)
  Sender: FDA-Public Use
  Company Number: FR-AVENTIS-200611589FR

PATIENT
  Age: 76 Year
  Sex: Male
  Weight: 57 kg

DRUGS (13)
  1. AMARYL [Suspect]
     Indication: DIABETES MELLITUS
     Route: 048
     Dates: start: 19990914, end: 20060313
  2. AMARYL [Suspect]
     Route: 048
     Dates: start: 20060314
  3. METFORMIN [Suspect]
     Indication: DIABETES MELLITUS
     Route: 048
     Dates: start: 20040209, end: 20060313
  4. METFORMIN [Suspect]
     Route: 048
     Dates: start: 20060314
  5. NOVONORM [Suspect]
     Indication: DIABETES MELLITUS
     Route: 048
     Dates: start: 20030614, end: 20060313
  6. NOVONORM [Suspect]
     Route: 048
     Dates: start: 20060317
  7. ASPIRIN [Concomitant]
     Route: 048
  8. AMIODARONE HCL [Concomitant]
     Indication: ATRIAL FIBRILLATION
     Route: 048
  9. LASILIX [Concomitant]
     Indication: ESSENTIAL HYPERTENSION
     Route: 048
  10. TRIATEC [Concomitant]
  11. DIFFU K [Concomitant]
  12. SYMBICORT [Concomitant]
  13. SINGULAIR [Concomitant]

REACTIONS (6)
  - CELLULITIS [None]
  - CONFUSIONAL STATE [None]
  - DEPRESSED LEVEL OF CONSCIOUSNESS [None]
  - DRUG INTERACTION [None]
  - DYSARTHRIA [None]
  - HYPOGLYCAEMIA [None]
